FAERS Safety Report 5608873-1 (Version None)
Quarter: 2008Q1

REPORT INFORMATION
  Report Type: 
  Country: None (occurrence: None)
  Receive Date: 20080131
  Receipt Date: 20080121
  Transmission Date: 20080703
  Serious: Yes (Death)
  Sender: FDA-Public Use
  Company Number: JP-NOVOPROD-270546

PATIENT

DRUGS (4)
  1. NOVOSEVEN [Suspect]
     Indication: INTRA-ABDOMINAL HAEMORRHAGE
     Dosage: 9.6 MG, QD
     Route: 042
     Dates: start: 20071122, end: 20071122
  2. RED BLOOD CELLS [Concomitant]
     Indication: HAEMORRHAGE
     Dosage: 30 U, UNK
     Route: 042
     Dates: start: 20071122, end: 20071122
  3. FRESH FROZEN PLASMA [Concomitant]
     Indication: HAEMORRHAGE
     Dosage: 40 U, UNK
     Route: 042
     Dates: start: 20071122, end: 20071122
  4. PLATELETS, CONCENTRATED [Concomitant]
     Indication: HAEMORRHAGE
     Dosage: 60 U, UNK
     Route: 042
     Dates: start: 20071122, end: 20071122

REACTIONS (1)
  - DRUG INEFFECTIVE [None]
